FAERS Safety Report 24053280 (Version 1)
Quarter: 2024Q3

REPORT INFORMATION
  Report Type: Spontaneous
  Country: CH (occurrence: CH)
  Receive Date: 20240705
  Receipt Date: 20240705
  Transmission Date: 20241016
  Serious: Yes (Other)
  Sender: GLAXOSMITHKLINE
  Company Number: CH-GLAXOSMITHKLINE-CH2024GSK081905

PATIENT

DRUGS (2)
  1. ALBUTEROL [Suspect]
     Active Substance: ALBUTEROL
     Indication: Cough
     Dosage: 100 UG, 12 PUSHES
     Route: 055
  2. ALBUTEROL [Suspect]
     Active Substance: ALBUTEROL
     Indication: Hypoventilation

REACTIONS (3)
  - Thyrotoxic periodic paralysis [Recovered/Resolved]
  - Ascending flaccid paralysis [Recovered/Resolved]
  - Hypokalaemia [Recovered/Resolved]
